FAERS Safety Report 24158685 (Version 1)
Quarter: 2024Q3

REPORT INFORMATION
  Report Type: Report from Study
  Country: US (occurrence: US)
  Receive Date: 20240731
  Receipt Date: 20240731
  Transmission Date: 20241017
  Serious: Yes (Hospitalization)
  Sender: EISAI
  Company Number: US-Eisai-EC-2024-170943

PATIENT
  Age: 67 Year
  Sex: Male
  Weight: 100.2 kg

DRUGS (13)
  1. LENVIMA [Suspect]
     Active Substance: LENVATINIB
     Indication: Hepatic cancer
     Route: 048
     Dates: start: 20240709, end: 20240721
  2. ONDANSETRON [Concomitant]
     Active Substance: ONDANSETRON
     Dosage: DOSE AND FREQUENCY UNKNOWN
     Dates: start: 20240708
  3. DIPHENOXYLATE-ATROPIN [Concomitant]
     Dosage: DOSE AND FREQUENCY UNKNOWN
     Dates: start: 20240708
  4. ASPIRIN [Concomitant]
     Active Substance: ASPIRIN
     Dosage: DOSE AND FREQUENCY UNKNOWN
     Dates: start: 20240626
  5. XARELTO [Concomitant]
     Active Substance: RIVAROXABAN
     Dosage: DOSE AND FREQUENCY UNKNOWN
     Dates: start: 20240626
  6. OMEPRAZOLE [Concomitant]
     Active Substance: OMEPRAZOLE
     Dosage: DOSE AND FREQUENCY UNKNOWN
     Dates: start: 20240626
  7. LISINOPRIL [Concomitant]
     Active Substance: LISINOPRIL
     Dosage: DOSE AND FREQUENCY UNKNOWN
     Dates: start: 20240626
  8. FENOFIBRATE [Concomitant]
     Active Substance: FENOFIBRATE
     Dosage: DOSE AND FREQUENCY UNKNOWN
     Dates: start: 20240626
  9. CARVEDILOL [Concomitant]
     Active Substance: CARVEDILOL
     Dosage: DOSE AND FREQUENCY UNKNOWN
     Dates: start: 20240626
  10. GABAPENTIN [Concomitant]
     Active Substance: GABAPENTIN
     Dosage: DOSE AND FREQUENCY UNKNOWN
     Dates: start: 20240626
  11. LANTUS [Concomitant]
     Active Substance: INSULIN GLARGINE
     Dosage: DOSE AND FREQUENCY UNKNOWN
     Dates: start: 20240626
  12. ATORVASTATIN [Concomitant]
     Active Substance: ATORVASTATIN
     Dosage: DOSE AND FREQUENCY UNKNOWN
     Dates: start: 20240626
  13. FUROSEMIDE [Concomitant]
     Active Substance: FUROSEMIDE
     Dosage: DOSE AND FREQUENCY UNKNOWN
     Dates: start: 20240626

REACTIONS (1)
  - Hepatic encephalopathy [Recovering/Resolving]

NARRATIVE: CASE EVENT DATE: 20240721
